FAERS Safety Report 12756153 (Version 1)
Quarter: 2016Q3

REPORT INFORMATION
  Report Type: Spontaneous
  Country: US (occurrence: US)
  Receive Date: 20160916
  Receipt Date: 20160916
  Transmission Date: 20161109
  Serious: No
  Sender: FDA-Public Use
  Company Number: US-009507513-1606USA002281

PATIENT
  Age: 13 Year
  Sex: Male

DRUGS (2)
  1. STERILE DILUENT [Suspect]
     Active Substance: WATER
     Dosage: UNK UNK, ONCE
     Route: 030
     Dates: start: 20160602, end: 20160602
  2. GARDASIL [Suspect]
     Active Substance: HUMAN PAPILLOMAVIRUS QUADRIVALENT (TYPES 6, 11, 16, AND 18) VACCINE, RECOMBINANT
     Indication: PROPHYLAXIS
     Dosage: .5 ML
     Route: 030
     Dates: start: 20160602, end: 20160602

REACTIONS (2)
  - Wrong technique in product usage process [Unknown]
  - Injection site pain [Recovered/Resolved]

NARRATIVE: CASE EVENT DATE: 20160602
